FAERS Safety Report 25699793 (Version 1)
Quarter: 2025Q3

REPORT INFORMATION
  Report Type: Spontaneous
  Country: US (occurrence: None)
  Receive Date: 20250818
  Receipt Date: 20250818
  Transmission Date: 20251020
  Serious: Yes (Hospitalization)
  Sender: FDA-CTU
  Company Number: None

PATIENT
  Age: 60 Year
  Sex: Female
  Weight: 96.3 kg

DRUGS (8)
  1. DICLOFENAC SODIUM [Suspect]
     Active Substance: DICLOFENAC SODIUM
     Indication: Pain
     Dates: start: 20220201, end: 20240525
  2. HYDROCHLOROTHIAZIDE [Concomitant]
     Active Substance: HYDROCHLOROTHIAZIDE
  3. UNSPECIFIED INGREDIENT [Concomitant]
     Active Substance: UNSPECIFIED INGREDIENT
  4. UNSPECIFIED INGREDIENT [Concomitant]
     Active Substance: UNSPECIFIED INGREDIENT
  5. LIDOCAINE [Concomitant]
     Active Substance: LIDOCAINE
  6. VITAMINS [Concomitant]
     Active Substance: VITAMINS
  7. CALCIUM [Concomitant]
     Active Substance: CALCIUM
  8. METAMUCIL [Concomitant]
     Active Substance: PLANTAGO SEED

REACTIONS (2)
  - Skin cancer [None]
  - Application site reaction [None]

NARRATIVE: CASE EVENT DATE: 20220116
